FAERS Safety Report 18183424 (Version 2)
Quarter: 2021Q1

REPORT INFORMATION
  Report Type: Report from Study
  Country: US (occurrence: US)
  Receive Date: 20200822
  Receipt Date: 20210208
  Transmission Date: 20210419
  Serious: Yes (Life-Threatening, Hospitalization)
  Sender: FDA-Public Use
  Company Number: NVSC2020US230895

PATIENT
  Age: 3 Month
  Sex: Female
  Weight: 7.26 kg

DRUGS (2)
  1. ZOLGENSMA [Suspect]
     Active Substance: ONASEMNOGENE ABEPARVOVEC-XIOI
     Indication: SPINAL MUSCULAR ATROPHY
     Dosage: 16.6 ML X 1 DOSE OVER 60 MINUTES
     Route: 042
     Dates: start: 20191210, end: 20191210
  2. PREDNISONE. [Concomitant]
     Active Substance: PREDNISONE
     Indication: PRODUCT USED FOR UNKNOWN INDICATION
     Dosage: 1 MG/KG, QD
     Route: 065
     Dates: start: 20191209, end: 20200620

REACTIONS (13)
  - Bronchiolitis [Recovered/Resolved]
  - Cough [Recovered/Resolved]
  - Otitis media acute [Recovered/Resolved]
  - Rhinorrhoea [Recovered/Resolved]
  - Aspartate aminotransferase increased [Not Recovered/Not Resolved]
  - Pyrexia [Recovered/Resolved]
  - Teething [Recovered/Resolved]
  - Alanine aminotransferase increased [Not Recovered/Not Resolved]
  - Hypophagia [Recovered/Resolved]
  - Atelectasis [Unknown]
  - Transaminases increased [Not Recovered/Not Resolved]
  - Ear discomfort [Recovered/Resolved]
  - Hepatitis C virus test positive [Not Recovered/Not Resolved]

NARRATIVE: CASE EVENT DATE: 20200303
